FAERS Safety Report 6143330-8 (Version None)
Quarter: 2009Q2

REPORT INFORMATION
  Report Type: 
  Country: None (occurrence: None)
  Receive Date: 20090403
  Receipt Date: 20090325
  Transmission Date: 20091009
  Serious: Yes (Life-Threatening, Hospitalization)
  Sender: FDA-Public Use
  Company Number: B0566751A

PATIENT
  Sex: Female

DRUGS (11)
  1. ARIXTRA [Suspect]
     Indication: DEEP VEIN THROMBOSIS
     Dosage: 7.5MG PER DAY
     Route: 058
     Dates: start: 20081212, end: 20081225
  2. BIPROFENID [Suspect]
     Dosage: 150MG TWICE PER DAY
     Route: 048
     Dates: start: 20081201, end: 20081225
  3. NEXIUM [Concomitant]
     Dosage: 20MG PER DAY
     Route: 048
  4. GLUCOPHAGE [Concomitant]
     Dosage: 850MG THREE TIMES PER DAY
     Route: 048
     Dates: end: 20081225
  5. DIAMICRON [Concomitant]
     Route: 048
     Dates: end: 20090106
  6. KALEORID [Concomitant]
     Dosage: 1G TWICE PER DAY
     Route: 048
     Dates: end: 20081225
  7. LASIX [Concomitant]
     Dosage: 40MG PER DAY
     Route: 048
     Dates: end: 20090106
  8. LESCOL [Concomitant]
     Dosage: 80MG PER DAY
     Route: 048
     Dates: end: 20090106
  9. LEVOTHYROXINE SODIUM [Concomitant]
     Indication: HYPOTHYROIDISM
     Dosage: 50MCG PER DAY
     Route: 048
  10. GAVISCON [Concomitant]
     Route: 048
     Dates: end: 20090106
  11. CARBOSYLANE [Concomitant]
     Indication: GASTROINTESTINAL DISORDER
     Route: 048
     Dates: start: 20081217, end: 20090106

REACTIONS (14)
  - ALTERED STATE OF CONSCIOUSNESS [None]
  - C-REACTIVE PROTEIN INCREASED [None]
  - CONDITION AGGRAVATED [None]
  - CYANOSIS [None]
  - HYPERKALAEMIA [None]
  - HYPOTENSION [None]
  - HYPOTHERMIA [None]
  - LACTIC ACIDOSIS [None]
  - LEUKOCYTOSIS [None]
  - PAIN IN EXTREMITY [None]
  - RASH MACULAR [None]
  - RENAL FAILURE [None]
  - SHOCK HAEMORRHAGIC [None]
  - THROMBOCYTHAEMIA [None]
